FAERS Safety Report 5941743-8 (Version None)
Quarter: 2008Q4

REPORT INFORMATION
  Report Type: 
  Country: None (occurrence: None)
  Receive Date: 20081105
  Receipt Date: 20081028
  Transmission Date: 20090506
  Serious: Yes (Death, Hospitalization)
  Sender: FDA-Public Use
  Company Number: FR-BRISTOL-MYERS SQUIBB COMPANY-14386981

PATIENT
  Age: 51 Year
  Sex: Male

DRUGS (5)
  1. ABILIFY [Suspect]
     Indication: SCHIZOPHRENIA
     Route: 048
  2. LOXAPINE HCL [Suspect]
     Indication: SCHIZOPHRENIA
     Dosage: LOXAPAC 50 MG/2ML (LOXAPINE)
     Route: 030
     Dates: start: 20050701
  3. NOZINAN [Suspect]
     Indication: SCHIZOPHRENIA
     Dosage: NOZINAN 100 MG (LEVOMEPROMAZINE) 1.5/D FROM JUNE 2003
     Dates: start: 20030601
  4. HALDOL [Suspect]
     Indication: SCHIZOPHRENIA
     Dosage: HALDOL 2MG/ML
     Dates: start: 20070301
  5. RISPERDAL CONSTA [Suspect]
     Indication: SCHIZOPHRENIA
     Dosage: RISPERDALCONSTA LP 37.5MG/2ML (RISPERIDONE) 1 INJECTION
     Dates: start: 20080401

REACTIONS (7)
  - ABDOMINAL PAIN [None]
  - CARDIO-RESPIRATORY ARREST [None]
  - DEPRESSED LEVEL OF CONSCIOUSNESS [None]
  - FAECALOMA [None]
  - INTESTINAL ISCHAEMIA [None]
  - INTESTINAL OBSTRUCTION [None]
  - SHOCK [None]
